FAERS Safety Report 5764259-0 (Version None)
Quarter: 2008Q2

REPORT INFORMATION
  Report Type: 
  Country: None (occurrence: None)
  Receive Date: 20080610
  Receipt Date: 20080527
  Transmission Date: 20081010
  Serious: Yes (Other)
  Sender: FDA-Public Use
  Company Number: CA-GENENTECH-261699

PATIENT
  Sex: Male
  Weight: 180 kg

DRUGS (1)
  1. OMALIZUMAB [Suspect]
     Indication: ASTHMA
     Dosage: 150 MG, Q4W
     Route: 058
     Dates: start: 20080128

REACTIONS (3)
  - HEART RATE IRREGULAR [None]
  - HOT FLUSH [None]
  - NERVOUSNESS [None]
